FAERS Safety Report 9823731 (Version 2)
Quarter: 2014Q1

REPORT INFORMATION
  Report Type: Spontaneous
  Country: US (occurrence: US)
  Receive Date: 20140116
  Receipt Date: 20140116
  Transmission Date: 20141002
  Serious: No
  Sender: FDA-Public Use
  Company Number: US-GILEAD-2011-0040090

PATIENT
  Age: 71 Year
  Sex: Female

DRUGS (13)
  1. LETAIRIS [Suspect]
     Indication: PULMONARY HYPERTENSION
     Route: 048
  2. REVATIO [Concomitant]
  3. CARVEDILOL [Concomitant]
  4. NIFEDIPINE [Concomitant]
  5. ISOSORBIDE MONONITRATE [Concomitant]
  6. VENTOLIN HFA [Concomitant]
  7. SYMBICORT [Concomitant]
  8. NOVOLOG [Concomitant]
  9. ZEMPLAR [Concomitant]
  10. PRAVASTATIN [Concomitant]
  11. ZEGERID [Concomitant]
  12. KLOR-CON [Concomitant]
  13. AZATHIOPRINE [Concomitant]

REACTIONS (2)
  - Decreased appetite [Not Recovered/Not Resolved]
  - Diarrhoea [Unknown]
